FAERS Safety Report 4586183-1 (Version None)
Quarter: 2005Q1

REPORT INFORMATION
  Report Type: 
  Country: None (occurrence: None)
  Receive Date: 20050125
  Receipt Date: 20041103
  Transmission Date: 20050727
  Serious: No
  Sender: FDA-Public Use
  Company Number: US_0411107973

PATIENT
  Age: 68 Year
  Sex: Female
  Weight: 84 kg

DRUGS (14)
  1. FORTEO [Suspect]
     Indication: OSTEOPOROSIS
     Dosage: 20 UG DAY
     Dates: start: 20041027
  2. ACTOS [Concomitant]
  3. NAMENDA (MENATINE HYDROCHLORIDE) [Concomitant]
  4. SYNTHROID [Concomitant]
  5. STARLIX [Concomitant]
  6. AMARYL [Concomitant]
  7. TOPROL-XL [Concomitant]
  8. NEURONTIN (GABAPENTIN PFIZER) [Concomitant]
  9. ULTRACET [Concomitant]
  10. DIOVAN [Concomitant]
  11. OMEPRAZOLE [Concomitant]
  12. ASPIRIN [Concomitant]
  13. CALCIUM GLUCONATE [Concomitant]
  14. TYLENOL W/ CODEINE NO. 3 [Concomitant]

REACTIONS (4)
  - ASTHENIA [None]
  - BALANCE DISORDER [None]
  - DIARRHOEA [None]
  - NIGHT CRAMPS [None]
